FAERS Safety Report 19396885 (Version 1)
Quarter: 2021Q2

REPORT INFORMATION
  Report Type: Spontaneous
  Country: CN (occurrence: CN)
  Receive Date: 20210609
  Receipt Date: 20210609
  Transmission Date: 20210717
  Serious: Yes (Other)
  Sender: FDA-Public Use
  Company Number: CN-ACIC FINE CHEMICALS INC-2112534

PATIENT

DRUGS (2)
  1. TRANEXAMIC ACID. [Suspect]
     Active Substance: TRANEXAMIC ACID
     Indication: POST PROCEDURAL HAEMORRHAGE
     Route: 042
  2. TRANEXAMIC ACID. [Suspect]
     Active Substance: TRANEXAMIC ACID
     Indication: OFF LABEL USE
     Route: 042

REACTIONS (2)
  - Pneumonia [Unknown]
  - Off label use [Unknown]
